FAERS Safety Report 5235995-X (Version None)
Quarter: 2007Q1

REPORT INFORMATION
  Report Type: 
  Country: None (occurrence: None)
  Receive Date: 20061208
  Receipt Date: 20051214
  Transmission Date: 20070707
  Serious: Yes (Other)
  Sender: FDA-Public Use
  Company Number: 2005UW18804

PATIENT
  Age: 52 Year
  Sex: Male
  Weight: 56.699 kg

DRUGS (8)
  1. CRESTOR [Suspect]
     Indication: BLOOD CHOLESTEROL INCREASED
     Dosage: 10 MG DAILY PO
     Route: 048
     Dates: start: 20051001
  2. ADVAIR DISKUS 100/50 [Concomitant]
  3. ALBUTEROL [Concomitant]
  4. DARVOCET-N 100 [Concomitant]
  5. TARKA [Concomitant]
  6. INDOCIN [Concomitant]
  7. THEOPHYLLINE [Concomitant]
  8. INSULIN [Concomitant]

REACTIONS (1)
  - ALOPECIA [None]
